FAERS Safety Report 8605875-8 (Version None)
Quarter: 2012Q3

REPORT INFORMATION
  Report Type: 
  Country: None (occurrence: None)
  Receive Date: 20120820
  Receipt Date: 20120810
  Transmission Date: 20120928
  Serious: Yes (Hospitalization, Congenital Anomaly)
  Sender: FDA-Public Use
  Company Number: US-GLAXOSMITHKLINE-A0990109A

PATIENT
  Sex: Male

DRUGS (3)
  1. VITAMIN AND MINERAL PRENATAL SUPPLEMENT W/ FOLIC ACID CAP [Concomitant]
  2. CLARITIN [Concomitant]
  3. PAXIL [Suspect]
     Indication: ANXIETY
     Dosage: 20MG PER DAY
     Route: 064

REACTIONS (3)
  - CRANIOSYNOSTOSIS [None]
  - PLAGIOCEPHALY [None]
  - FOETAL EXPOSURE DURING PREGNANCY [None]
